FAERS Safety Report 18198156 (Version 1)
Quarter: 2020Q3

REPORT INFORMATION
  Report Type: Spontaneous
  Country: FR (occurrence: FR)
  Receive Date: 20200826
  Receipt Date: 20200826
  Transmission Date: 20201103
  Serious: Yes (Hospitalization, Other)
  Sender: FDA-Public Use
  Company Number: FR-PFIZER INC-2020328768

PATIENT
  Age: 53 Year
  Sex: Female
  Weight: 39 kg

DRUGS (4)
  1. LEXOMIL [Suspect]
     Active Substance: BROMAZEPAM
     Indication: ANXIETY
     Dosage: 3 MG, SINGLE
     Route: 048
     Dates: start: 20200617
  2. METHADONE AP HP [Suspect]
     Active Substance: METHADONE HYDROCHLORIDE
     Indication: CANCER PAIN
     Dosage: 80 MG, 1X/DAY
     Route: 048
     Dates: start: 202001
  3. LYRICA [Suspect]
     Active Substance: PREGABALIN
     Dosage: UNK
  4. TERCIAN [CYAMEMAZINE TARTRATE] [Suspect]
     Active Substance: CYAMEMAZINE
     Indication: ANXIETY
     Dosage: 12.5 MG, FREQ:3 H (HOURS)
     Route: 048
     Dates: start: 20200617, end: 20200617

REACTIONS (2)
  - Coma [Recovered/Resolved]
  - Urinary retention [Recovered/Resolved]

NARRATIVE: CASE EVENT DATE: 20200617
